FAERS Safety Report 9491610 (Version 1)
Quarter: 2013Q1

REPORT INFORMATION
  Report Type: Not Available
  Country: US (occurrence: US)
  Receive Date: 20121219
  Receipt Date: 20121219
  Transmission Date: 20140127
  Serious: No
  Sender: FDA-Public Use
  Company Number: US-LUNDBECK-DKLU1083737

PATIENT
  Sex: Female

DRUGS (1)
  1. ONFI [Suspect]
     Indication: LENNOX-GASTAUT SYNDROME
     Dosage: 1 TABLET
     Route: 048

REACTIONS (1)
  - Drug ineffective [Unknown]
